FAERS Safety Report 19913345 (Version 1)
Quarter: 2021Q4

REPORT INFORMATION
  Report Type: Spontaneous
  Country: KR (occurrence: KR)
  Receive Date: 20211004
  Receipt Date: 20211004
  Transmission Date: 20220303
  Serious: Yes (Other)
  Sender: FDA-Public Use
  Company Number: KR-VIIV HEALTHCARE ULC-KR2021APC204073

PATIENT
  Age: 40 Year
  Sex: Female
  Weight: 87 kg

DRUGS (38)
  1. KIVEXA [Suspect]
     Active Substance: ABACAVIR SULFATE\LAMIVUDINE
     Indication: HIV infection
     Dosage: UNK
     Route: 048
     Dates: start: 20130327
  2. ACETYLCYSTEINE [Concomitant]
     Active Substance: ACETYLCYSTEINE
     Indication: Respiratory disorder
     Dosage: UNK
     Route: 048
     Dates: start: 20131204, end: 20131210
  3. ACETYLCYSTEINE [Concomitant]
     Active Substance: ACETYLCYSTEINE
     Dosage: UNK
     Route: 048
     Dates: start: 20140203, end: 20140207
  4. AMLODIPINE [Concomitant]
     Active Substance: AMLODIPINE BESYLATE
     Indication: Essential hypertension
     Dosage: UNK
     Route: 048
     Dates: start: 20111201
  5. ATORVASTATIN [Concomitant]
     Active Substance: ATORVASTATIN
     Indication: Hyperlipidaemia
     Dosage: UNK
     Route: 048
     Dates: start: 20140129
  6. BUPROPION [Concomitant]
     Active Substance: BUPROPION
     Indication: Depression
     Dosage: UNK
     Route: 048
     Dates: start: 20130626
  7. CANDESARTAN [Concomitant]
     Active Substance: CANDESARTAN
     Indication: Essential hypertension
     Dosage: UNK
     Route: 048
     Dates: start: 20120607
  8. CARVEDILOL [Concomitant]
     Active Substance: CARVEDILOL
     Indication: Essential hypertension
     Dosage: UNK
     Route: 048
     Dates: start: 20110120
  9. CHLORPHENIRAMINE MALEATE [Concomitant]
     Active Substance: CHLORPHENIRAMINE MALEATE
     Indication: Respiratory disorder
     Dosage: UNK
     Route: 048
     Dates: start: 20131204, end: 20131210
  10. CHLORPHENIRAMINE MALEATE [Concomitant]
     Active Substance: CHLORPHENIRAMINE MALEATE
     Dosage: UNK
     Route: 048
     Dates: start: 20140203, end: 20140207
  11. CIPROFLOXACIN [Concomitant]
     Active Substance: CIPROFLOXACIN
     Indication: Urinary tract infection
     Dosage: UNK
     Route: 048
     Dates: start: 20130522, end: 20130604
  12. CLOBAZAM [Concomitant]
     Active Substance: CLOBAZAM
     Indication: Dizziness
     Dosage: UNK
     Route: 048
     Dates: start: 20130930, end: 20131006
  13. MONTMORILLONITE [Concomitant]
     Active Substance: MONTMORILLONITE
     Indication: Diarrhoea
     Dosage: UNK
     Route: 048
     Dates: start: 20130724, end: 20130730
  14. DOXAZOSIN [Concomitant]
     Active Substance: DOXAZOSIN MESYLATE
     Indication: Essential hypertension
     Dosage: UNK
     Route: 048
     Dates: start: 20100226
  15. DULOXETINE [Concomitant]
     Active Substance: DULOXETINE
     Indication: Depression
     Dosage: UNK
     Route: 048
     Dates: start: 20130417, end: 20130625
  16. ESCITALOPRAM [Concomitant]
     Active Substance: ESCITALOPRAM OXALATE
     Indication: Depression
     Dosage: UNK
     Route: 048
     Dates: start: 20111220
  17. FENOFIBRATE [Concomitant]
     Active Substance: FENOFIBRATE
     Indication: Hyperlipidaemia
     Dosage: UNK
     Dates: start: 20100823
  18. FUROSEMIDE [Concomitant]
     Active Substance: FUROSEMIDE
     Indication: Essential hypertension
     Dosage: UNK
     Route: 048
     Dates: start: 20130207
  19. INFLUENZA VIRUS VACCINE [Concomitant]
     Active Substance: INFLUENZA VIRUS VACCINE
     Indication: Prophylaxis
     Dosage: UNK
     Dates: start: 20131127, end: 20131127
  20. LACTIC ACID PRODUCING ORGANISMS [Concomitant]
     Indication: Diarrhoea
     Dosage: UNK
     Route: 048
     Dates: start: 20130724, end: 20130730
  21. LORAZEPAM [Concomitant]
     Active Substance: LORAZEPAM
     Indication: Depression
     Dosage: UNK
     Route: 048
     Dates: start: 20131023
  22. METFORMIN [Concomitant]
     Active Substance: METFORMIN HYDROCHLORIDE
     Indication: Diabetes mellitus
     Dosage: UNK
     Route: 048
     Dates: start: 20131010, end: 20140428
  23. METFORMIN + SAXAGLIPTIN [Concomitant]
     Indication: Diabetes mellitus
     Dosage: UNK
     Route: 048
     Dates: start: 20130930, end: 20131006
  24. MIRTAZAPINE [Concomitant]
     Active Substance: MIRTAZAPINE
     Indication: Depression
     Dosage: UNK
     Route: 048
     Dates: start: 20130626
  25. MOSAPRIDE [Concomitant]
     Active Substance: MOSAPRIDE
     Indication: Prophylaxis
     Dosage: UNK
     Route: 048
     Dates: start: 20130430, end: 20130604
  26. OSELTAMIVIR [Concomitant]
     Active Substance: OSELTAMIVIR
     Indication: Respiratory disorder
     Dosage: UNK
     Route: 048
     Dates: start: 20140203, end: 20140207
  27. ACETAMINOPHEN [Concomitant]
     Active Substance: ACETAMINOPHEN
     Indication: Respiratory disorder
     Dosage: UNK
     Route: 048
     Dates: start: 20131204, end: 20131210
  28. ACETAMINOPHEN [Concomitant]
     Active Substance: ACETAMINOPHEN
     Dosage: UNK
     Route: 048
     Dates: start: 20140203, end: 20140207
  29. ACETAMINOPHEN [Concomitant]
     Active Substance: ACETAMINOPHEN
     Dosage: UNK
     Route: 048
     Dates: start: 20130724, end: 20130730
  30. ACETAMINOPHEN [Concomitant]
     Active Substance: ACETAMINOPHEN
     Dosage: UNK
     Route: 048
     Dates: start: 20130430, end: 20130727
  31. PSEUDOEPHEDRINE. [Concomitant]
     Active Substance: PSEUDOEPHEDRINE HYDROCHLORIDE
     Indication: Respiratory disorder
     Dosage: UNK
     Route: 048
     Dates: start: 20130430, end: 20130507
  32. QUETIAPINE [Concomitant]
     Active Substance: QUETIAPINE
     Indication: Depression
     Dosage: UNK
     Route: 048
     Dates: start: 20130522, end: 20140625
  33. RALTEGRAVIR [Concomitant]
     Active Substance: RALTEGRAVIR
     Indication: HIV infection
     Dosage: UNK
     Route: 048
     Dates: start: 20130327
  34. ACETAMINOPHEN\TRAMADOL [Concomitant]
     Active Substance: ACETAMINOPHEN\TRAMADOL
     Indication: Back pain
     Dosage: UNK
     Route: 048
     Dates: start: 20131127, end: 20131203
  35. ZIPEPROL [Concomitant]
     Active Substance: ZIPEPROL
     Indication: Respiratory disorder
     Dosage: UNK
     Dates: start: 20131204, end: 20131210
  36. ZIPEPROL [Concomitant]
     Active Substance: ZIPEPROL
     Dosage: UNK
     Dates: start: 20140203, end: 20140207
  37. ZOLPIDEM [Concomitant]
     Active Substance: ZOLPIDEM TARTRATE
     Indication: Depression
     Dosage: UNK
     Dates: start: 20130327, end: 20130424
  38. IBUDILAST [Concomitant]
     Active Substance: IBUDILAST
     Indication: Dizziness
     Dosage: UNK
     Route: 048
     Dates: start: 20130930, end: 20131006

REACTIONS (13)
  - Diabetes mellitus [Not Recovered/Not Resolved]
  - Dizziness [Recovered/Resolved]
  - Headache [Recovered/Resolved]
  - Diarrhoea [Recovered/Resolved]
  - Abdominal pain [Recovered/Resolved]
  - Abdominal pain upper [Recovered/Resolved]
  - Dyspepsia [Recovered/Resolved]
  - Nausea [Recovered/Resolved]
  - Pharyngitis [Recovered/Resolved]
  - Upper respiratory tract infection [Recovered/Resolved]
  - Urinary tract infection [Recovered/Resolved]
  - Musculoskeletal pain [Recovered/Resolved]
  - Oedema peripheral [Recovered/Resolved]

NARRATIVE: CASE EVENT DATE: 20130702
